FAERS Safety Report 23289320 (Version 1)
Quarter: 2023Q4

REPORT INFORMATION
  Report Type: Spontaneous
  Country: FR (occurrence: FR)
  Receive Date: 20231212
  Receipt Date: 20231212
  Transmission Date: 20240109
  Serious: Yes (Hospitalization)
  Sender: FDA-Public Use
  Company Number: None

PATIENT
  Age: 11 Year
  Sex: Male

DRUGS (25)
  1. METHOTREXATE [Suspect]
     Active Substance: METHOTREXATE
     Indication: Burkitt^s lymphoma
     Dosage: 15 MILLIGRAM
     Route: 065
     Dates: start: 20230910, end: 20230910
  2. METHOTREXATE [Suspect]
     Active Substance: METHOTREXATE
     Dosage: 8000 MILLIGRAM/SQ. METER
     Route: 065
     Dates: start: 20230920, end: 20230920
  3. METHOTREXATE [Suspect]
     Active Substance: METHOTREXATE
     Dosage: 15 MILLIGRAM
     Route: 065
     Dates: start: 20230920, end: 20230920
  4. METHOTREXATE [Suspect]
     Active Substance: METHOTREXATE
     Dosage: 8000 MILLIGRAM/SQ. METER
     Route: 065
     Dates: start: 20231011, end: 20231011
  5. METHOTREXATE [Suspect]
     Active Substance: METHOTREXATE
     Dosage: 15 MILLIGRAM
     Route: 065
     Dates: start: 20231011, end: 20231011
  6. HYDROCORTISONE [Suspect]
     Active Substance: HYDROCORTISONE
     Indication: Burkitt^s lymphoma
     Dosage: 15 MILLIGRAM
     Route: 042
     Dates: start: 20230910, end: 20230910
  7. HYDROCORTISONE [Suspect]
     Active Substance: HYDROCORTISONE
     Dosage: 15 MILLIGRAM
     Route: 065
     Dates: start: 20230920, end: 20230920
  8. HYDROCORTISONE [Suspect]
     Active Substance: HYDROCORTISONE
     Dosage: 15 MILLIGRAM
     Route: 065
     Dates: start: 20231011, end: 20231011
  9. VINCRISTINE SULFATE [Suspect]
     Active Substance: VINCRISTINE SULFATE
     Indication: Burkitt^s lymphoma
     Dosage: 1 MILLIGRAM/SQ. METER
     Route: 065
     Dates: start: 20230910, end: 20230910
  10. VINCRISTINE SULFATE [Suspect]
     Active Substance: VINCRISTINE SULFATE
     Dosage: 2 MILLIGRAM/SQ. METER
     Route: 065
     Dates: start: 20230920, end: 20230920
  11. VINCRISTINE SULFATE [Suspect]
     Active Substance: VINCRISTINE SULFATE
     Dosage: 2 MILLIGRAM/SQ. METER
     Route: 065
     Dates: start: 20231011, end: 20231011
  12. CYCLOPHOSPHAMIDE [Suspect]
     Active Substance: CYCLOPHOSPHAMIDE
     Indication: Burkitt^s lymphoma
     Dosage: 375 MILLIGRAM/SQ. METER
     Route: 065
     Dates: start: 20230902, end: 20230910
  13. CYCLOPHOSPHAMIDE [Suspect]
     Active Substance: CYCLOPHOSPHAMIDE
     Dosage: 375 MILLIGRAM/SQ. METER
     Route: 065
     Dates: start: 20230910, end: 20230910
  14. CYCLOPHOSPHAMIDE [Suspect]
     Active Substance: CYCLOPHOSPHAMIDE
     Dosage: 250 MILLIGRAM/SQ. METER
     Route: 065
     Dates: start: 20230920, end: 20230920
  15. CYCLOPHOSPHAMIDE [Suspect]
     Active Substance: CYCLOPHOSPHAMIDE
     Dosage: 250 MILLIGRAM/SQ. METER
     Route: 065
     Dates: start: 20231011, end: 20231011
  16. RITUXIMAB [Suspect]
     Active Substance: RITUXIMAB
     Indication: Burkitt^s lymphoma
     Dosage: 375 MILLIGRAM/SQ. METER
     Route: 065
     Dates: start: 20230910, end: 20230910
  17. RITUXIMAB [Suspect]
     Active Substance: RITUXIMAB
     Dosage: 375 MILLIGRAM/SQ. METER
     Route: 065
     Dates: start: 20230920, end: 20230920
  18. RITUXIMAB [Suspect]
     Active Substance: RITUXIMAB
     Dosage: 375 MILLIGRAM/SQ. METER
     Route: 065
     Dates: start: 20231011, end: 20231011
  19. CYTARABINE [Suspect]
     Active Substance: CYTARABINE
     Indication: Burkitt^s lymphoma
     Dosage: 30 MILLIGRAM
     Route: 065
     Dates: start: 20230920, end: 20230920
  20. CYTARABINE [Suspect]
     Active Substance: CYTARABINE
     Dosage: 30 MILLIGRAM
     Route: 065
     Dates: start: 20230902, end: 20230902
  21. CYTARABINE [Suspect]
     Active Substance: CYTARABINE
     Dosage: 30 MILLIGRAM
     Route: 065
     Dates: start: 20231011, end: 20231011
  22. CYTARABINE [Suspect]
     Active Substance: CYTARABINE
     Dosage: 30 MILLIGRAM
     Route: 065
     Dates: start: 20230910, end: 20230910
  23. FUROSEMIDE [Concomitant]
     Active Substance: FUROSEMIDE
     Dosage: UNK
     Route: 065
  24. Calcidose [Concomitant]
     Dosage: UNK
     Route: 065
  25. PIPERACILLIN SODIUM\TAZOBACTAM SODIUM [Concomitant]
     Active Substance: PIPERACILLIN SODIUM\TAZOBACTAM SODIUM
     Dosage: UNK
     Route: 065

REACTIONS (1)
  - Visual acuity reduced [Not Recovered/Not Resolved]

NARRATIVE: CASE EVENT DATE: 20230910
